FAERS Safety Report 5778290-2 (Version None)
Quarter: 2008Q2

REPORT INFORMATION
  Report Type: 
  Country: None (occurrence: None)
  Receive Date: 20080619
  Receipt Date: 20080421
  Transmission Date: 20081010
  Serious: No
  Sender: FDA-Public Use
  Company Number: US-BAYER-200811875BCC

PATIENT
  Age: 63 Year
  Sex: Female
  Weight: 52 kg

DRUGS (5)
  1. ALEVE [Suspect]
     Indication: ARTHRITIS
     Dosage: UNIT DOSE: 220 MG
     Dates: start: 20080417
  2. CROITITIN [Concomitant]
  3. ASCORBIC ACID [Concomitant]
  4. CALCIUM [Concomitant]
  5. COD LIVER OIL [Concomitant]

REACTIONS (1)
  - ARTHRALGIA [None]
